FAERS Safety Report 6371188-0 (Version None)
Quarter: 2009Q3

REPORT INFORMATION
  Report Type: 
  Country: None (occurrence: None)
  Receive Date: 20090923
  Receipt Date: 20070925
  Transmission Date: 20100115
  Serious: No
  Sender: FDA-Public Use
  Company Number: US-ASTRAZENECA-2007UW01956

PATIENT
  Age: 14515 Day
  Sex: Male
  Weight: 116.6 kg

DRUGS (15)
  1. SEROQUEL [Suspect]
     Indication: SLEEP DISORDER
     Dosage: 25 TO 200 MG
     Route: 048
     Dates: start: 20040120, end: 20060627
  2. SEROQUEL [Suspect]
     Indication: ANXIETY
     Dosage: 25 TO 200 MG
     Route: 048
     Dates: start: 20040120, end: 20060627
  3. SEROQUEL [Suspect]
     Route: 048
     Dates: start: 20040519, end: 20040526
  4. SEROQUEL [Suspect]
     Route: 048
     Dates: start: 20040519, end: 20040526
  5. SEROQUEL [Suspect]
     Route: 048
     Dates: start: 20040615, end: 20051005
  6. SEROQUEL [Suspect]
     Route: 048
     Dates: start: 20040615, end: 20051005
  7. PAXIL [Concomitant]
     Dosage: 20 TO 40 MG DAILY
     Route: 048
     Dates: start: 20010808
  8. DEPAKOTE ER [Concomitant]
     Indication: MOOD ALTERED
     Route: 048
     Dates: start: 20040521
  9. ASPIRIN [Concomitant]
     Dosage: 325 MG TWO TABLETS AS REQUIRED
     Route: 048
     Dates: start: 20040114
  10. TRAZODONE [Concomitant]
     Indication: SLEEP DISORDER
     Dosage: 25 TO 100 MG AT BEDTIME
     Route: 048
     Dates: start: 19980724
  11. TRAZODONE [Concomitant]
     Indication: INSOMNIA
     Dosage: 25 TO 100 MG AT BEDTIME
     Route: 048
     Dates: start: 19980724
  12. GLUCOPHAGE [Concomitant]
     Route: 048
     Dates: start: 20050822
  13. WELLBUTRIN XL [Concomitant]
     Route: 048
  14. ATIVAN [Concomitant]
     Indication: ANXIETY
     Dosage: 0.5 TO 1 MG
     Route: 048
     Dates: start: 20040114
  15. LEXAPRO [Concomitant]
     Route: 048
     Dates: start: 20040115

REACTIONS (7)
  - BACK PAIN [None]
  - DIABETES MELLITUS INADEQUATE CONTROL [None]
  - GASTROENTERITIS [None]
  - HYPONATRAEMIA [None]
  - NAUSEA [None]
  - SLEEP APNOEA SYNDROME [None]
  - TYPE 2 DIABETES MELLITUS [None]
